FAERS Safety Report 5762599-2 (Version None)
Quarter: 2008Q2

REPORT INFORMATION
  Report Type: 
  Country: None (occurrence: None)
  Receive Date: 20080609
  Receipt Date: 20080602
  Transmission Date: 20081010
  Serious: Yes (Other)
  Sender: FDA-Public Use
  Company Number: US-ASTRAZENECA-2008UW08163

PATIENT
  Age: 68 Year
  Sex: Female
  Weight: 63.5 kg

DRUGS (8)
  1. ARIMIDEX [Suspect]
     Indication: BREAST CANCER
     Route: 048
     Dates: start: 20080325, end: 20080401
  2. LEXAPRO [Concomitant]
  3. BENACOR [Concomitant]
  4. PREDNISONE TAB [Concomitant]
  5. ALPRAZOLAM [Concomitant]
  6. DUO-NEB NEBULIZER [Concomitant]
  7. PULMICORT [Concomitant]
  8. KEFLEX [Concomitant]

REACTIONS (4)
  - ACTIVITIES OF DAILY LIVING IMPAIRED [None]
  - LETHARGY [None]
  - PAIN IN EXTREMITY [None]
  - SPINAL OSTEOARTHRITIS [None]
